FAERS Safety Report 4656935-8 (Version None)
Quarter: 2005Q2

REPORT INFORMATION
  Report Type: 
  Country: None (occurrence: None)
  Receive Date: 20050506
  Receipt Date: 20050426
  Transmission Date: 20051028
  Serious: Yes (Hospitalization)
  Sender: FDA-Public Use
  Company Number: HQWYE323226APR05

PATIENT
  Age: 75 Year
  Sex: Female

DRUGS (2)
  1. CORDARONE [Suspect]
     Indication: TACHYCARDIA PAROXYSMAL
     Route: 042
  2. CLAFORAN [Concomitant]

REACTIONS (1)
  - CYTOLYTIC HEPATITIS [None]
